FAERS Safety Report 5307854-5 (Version None)
Quarter: 2007Q2

REPORT INFORMATION
  Report Type: 
  Country: None (occurrence: None)
  Receive Date: 20070419
  Receipt Date: 20070405
  Transmission Date: 20071010
  Serious: Yes (Hospitalization)
  Sender: FDA-Public Use
  Company Number: A-NJ2007-14698

PATIENT
  Age: 82 Year
  Sex: Male

DRUGS (9)
  1. TRACLEER [Suspect]
     Indication: PULMONARY HYPERTENSION
     Dosage: 125 MG, BID, ORAL
     Route: 048
     Dates: start: 20070116, end: 20070302
  2. LISINOPRIL [Concomitant]
  3. APO-METFORMIN (METFORMIN HYDROCHLORIDE) [Concomitant]
  4. PROTONIX [Concomitant]
  5. LIPITOR [Concomitant]
  6. DIGOXIN [Concomitant]
  7. FUROSEMIDE [Concomitant]
  8. COUMADIN [Concomitant]
  9. NPH INSULIN (INSULIN INJECTION, ISOPHANE) [Concomitant]

REACTIONS (6)
  - ANAEMIA [None]
  - DUODENAL POLYP [None]
  - GASTRITIS [None]
  - HAEMATOCRIT DECREASED [None]
  - LIPOMA [None]
  - OCCULT BLOOD POSITIVE [None]
